FAERS Safety Report 5627992-7 (Version None)
Quarter: 2008Q1

REPORT INFORMATION
  Report Type: 
  Country: None (occurrence: None)
  Receive Date: 20080215
  Receipt Date: 20080205
  Transmission Date: 20080703
  Serious: Yes (Hospitalization)
  Sender: FDA-Public Use
  Company Number: DE-ELI_LILLY_AND_COMPANY-DE200801000304

PATIENT
  Sex: Male

DRUGS (2)
  1. BYETTA [Suspect]
     Indication: DIABETES MELLITUS
     Dosage: 10UG MORNING
     Route: 058
     Dates: start: 20071022, end: 20070101
  2. BYETTA [Suspect]
     Dosage: 5 UG, EACH EVENING
     Route: 058
     Dates: start: 20071022, end: 20070101

REACTIONS (4)
  - DYSPHAGIA [None]
  - LYMPHADENOPATHY [None]
  - LYMPHOMA [None]
  - NEURILEMMOMA [None]
